FAERS Safety Report 14967241 (Version 1)
Quarter: 2018Q2

REPORT INFORMATION
  Report Type: Report from Study
  Country: CN (occurrence: CN)
  Receive Date: 20180604
  Receipt Date: 20180604
  Transmission Date: 20180711
  Serious: Yes (Death, Life-Threatening)
  Sender: FDA-Public Use
  Company Number: CN-CHEPLA-C20170212

PATIENT

DRUGS (3)
  1. ALL-TRANS RETINOIC ACID (ATRA) [Suspect]
     Active Substance: TRETINOIN
     Indication: ACUTE PROMYELOCYTIC LEUKAEMIA
     Dosage: 25 MG/M^2/DAY
  2. CYTARABINE. [Suspect]
     Active Substance: CYTARABINE
     Indication: ACUTE PROMYELOCYTIC LEUKAEMIA
     Dosage: CYTARABINE AND DAUNORUBICIN CHEMOTHERAPY AS INDUCTION TREATMENT
  3. DAUNORUBICIN [Suspect]
     Active Substance: DAUNORUBICIN
     Indication: ACUTE PROMYELOCYTIC LEUKAEMIA
     Dosage: CYTARABINE AND DAUNORUBICIN CHEMOTHERAPY AS INDUCTION TREATMENT

REACTIONS (2)
  - Death [Fatal]
  - Acute promyelocytic leukaemia differentiation syndrome [Unknown]
